FAERS Safety Report 8280737-7 (Version None)
Quarter: 2012Q2

REPORT INFORMATION
  Report Type: 
  Country: None (occurrence: None)
  Receive Date: 20120412
  Receipt Date: 20120330
  Transmission Date: 20120825
  Serious: Yes (Other)
  Sender: FDA-Public Use
  Company Number: US-ABBOTT-12P-163-0920077-00

PATIENT
  Age: 18 Year
  Sex: Female

DRUGS (4)
  1. KALETRA [Suspect]
     Indication: ANTIVIRAL TREATMENT
     Route: 048
     Dates: start: 20110321
  2. SUSTIVA [Suspect]
     Indication: ANTIVIRAL TREATMENT
     Route: 048
     Dates: end: 20110321
  3. COMBIVIR [Suspect]
     Indication: ANTIVIRAL TREATMENT
     Route: 048
     Dates: start: 20110321, end: 20111001
  4. TRUVADA [Suspect]
     Indication: ANTIVIRAL TREATMENT
     Route: 048
     Dates: end: 20110321

REACTIONS (1)
  - POLYHYDRAMNIOS [None]
